FAERS Safety Report 18601316 (Version 2)
Quarter: 2020Q4

REPORT INFORMATION
  Report Type: Report from Study
  Country: DE (occurrence: DE)
  Receive Date: 20201210
  Receipt Date: 20201216
  Transmission Date: 20210114
  Serious: Yes (Other)
  Sender: FDA-Public Use
  Company Number: NVSC2020DE328565

PATIENT
  Age: 12 Year
  Sex: Male
  Weight: 78 kg

DRUGS (2)
  1. ILARIS [Suspect]
     Active Substance: CANAKINUMAB
     Indication: CHRONIC INFANTILE NEUROLOGICAL CUTANEOUS AND ARTICULAR SYNDROME
     Dosage: 150 MG
     Route: 058
     Dates: start: 20180524
  2. ILARIS [Suspect]
     Active Substance: CANAKINUMAB
     Dosage: 150 MG
     Route: 058
     Dates: start: 20200920

REACTIONS (1)
  - Seizure [Recovered/Resolved]

NARRATIVE: CASE EVENT DATE: 20201006
